FAERS Safety Report 7538798-6 (Version None)
Quarter: 2011Q2

REPORT INFORMATION
  Report Type: 
  Country: None (occurrence: None)
  Receive Date: 20110610
  Receipt Date: 20110523
  Transmission Date: 20111010
  Serious: Yes (Hospitalization)
  Sender: FDA-Public Use
  Company Number: US-BAYER-201025501NA

PATIENT
  Age: 18 Year
  Sex: Female
  Weight: 56.689 kg

DRUGS (3)
  1. LEVORA 0.15/30-21 [Concomitant]
     Dosage: UNK
  2. YASMIN [Suspect]
     Indication: ORAL CONTRACEPTION
     Dosage: UNK
     Route: 048
     Dates: start: 20060504, end: 20061116
  3. YASMIN [Suspect]
     Indication: MENSTRUATION IRREGULAR

REACTIONS (2)
  - GALLBLADDER NON-FUNCTIONING [None]
  - CHOLECYSTITIS [None]
